FAERS Safety Report 16924192 (Version 1)
Quarter: 2019Q4

REPORT INFORMATION
  Report Type: Spontaneous
  Country: NL (occurrence: NL)
  Receive Date: 20191016
  Receipt Date: 20191016
  Transmission Date: 20200122
  Serious: Yes (Death, Hospitalization, Other)
  Sender: FDA-Public Use
  Company Number: NL-AMNEAL PHARMACEUTICALS-2019-AMRX-02246

PATIENT
  Age: 29 Year
  Sex: Male

DRUGS (1)
  1. SULFAMETHOXAZOLE AND TRIMETHOPRIM [Suspect]
     Active Substance: SULFAMETHOXAZOLE\TRIMETHOPRIM
     Indication: SUBCUTANEOUS ABSCESS
     Dosage: UNK
     Route: 065

REACTIONS (4)
  - Acute lung injury [Not Recovered/Not Resolved]
  - Fungaemia [Unknown]
  - Multiple organ dysfunction syndrome [Fatal]
  - Respiratory failure [Not Recovered/Not Resolved]
